FAERS Safety Report 6674598-7 (Version None)
Quarter: 2010Q2

REPORT INFORMATION
  Report Type: 
  Country: None (occurrence: None)
  Receive Date: 20100409
  Receipt Date: 20100401
  Transmission Date: 20101027
  Serious: Yes (Death, Other)
  Sender: FDA-Public Use
  Company Number: JP-ROCHE-685075

PATIENT
  Sex: Female
  Weight: 61 kg

DRUGS (13)
  1. HERCEPTIN [Suspect]
     Indication: BREAST CANCER METASTATIC
     Route: 042
     Dates: start: 20091022, end: 20091022
  2. HERCEPTIN [Suspect]
     Route: 042
     Dates: start: 20091203
  3. MUCOSOLVAN [Suspect]
     Indication: DRUG USE FOR UNKNOWN INDICATION
     Route: 048
  4. ARIMIDEX [Concomitant]
     Route: 048
     Dates: start: 20091014
  5. OLMESARTAN MEDOXOMIL [Concomitant]
     Route: 048
  6. CARVEDILOL [Concomitant]
     Dosage: NOTE: DIVIDED INTO 2 DOSES
     Route: 048
  7. BEZATOL SR [Concomitant]
     Route: 048
  8. ADALAT [Concomitant]
     Route: 048
  9. DIOVAN [Concomitant]
     Route: 048
  10. AMARYL [Concomitant]
     Route: 048
  11. LIPITOR [Concomitant]
     Dosage: DRUG NAME REPORTED AS ATORVASTATIN CALCIUM
     Route: 048
  12. ALLOPURINOL [Concomitant]
     Route: 048
  13. SEIBULE [Concomitant]
     Route: 048

REACTIONS (2)
  - INTERSTITIAL LUNG DISEASE [None]
  - LYMPHANGIOSIS CARCINOMATOSA [None]
